FAERS Safety Report 4514026-0 (Version None)
Quarter: 2004Q4

REPORT INFORMATION
  Report Type: 
  Country: None (occurrence: None)
  Receive Date: 20041130
  Receipt Date: 20041020
  Transmission Date: 20050328
  Serious: No
  Sender: FDA-Public Use
  Company Number: US-GLAXOSMITHKLINE-A0530672A

PATIENT

DRUGS (7)
  1. WELLBUTRIN XL [Suspect]
     Indication: DEPRESSION
     Dosage: 300MG PER DAY
     Route: 048
  2. WELLBUTRIN SR [Suspect]
     Indication: DRUG USE FOR UNKNOWN INDICATION
     Route: 048
  3. TRAZODONE HCL [Concomitant]
     Route: 048
  4. ZYRTEC [Concomitant]
     Route: 048
  5. ADVAIR [Concomitant]
  6. NEXIUM [Concomitant]
     Route: 048
  7. LEXAPRO [Concomitant]
     Route: 048

REACTIONS (3)
  - DRUG INEFFECTIVE [None]
  - ENERGY INCREASED [None]
  - STOOL ANALYSIS ABNORMAL [None]
